FAERS Safety Report 16116485 (Version 1)
Quarter: 2019Q1

REPORT INFORMATION
  Report Type: Spontaneous
  Country: US (occurrence: US)
  Receive Date: 20190221
  Receipt Date: 20190221
  Transmission Date: 20190418
  Serious: Yes (Hospitalization)
  Sender: FDA-Public Use
  Company Number: None

PATIENT
  Age: 32 Year
  Sex: Female
  Weight: 40.2 kg

DRUGS (1)
  1. MOLIBRESIB. [Suspect]
     Active Substance: MOLIBRESIB
     Indication: NUT MIDLINE CARCINOMA
     Route: 048
     Dates: start: 20190209

REACTIONS (4)
  - Epistaxis [None]
  - Tumour haemorrhage [None]
  - Transfusion [None]
  - Platelet transfusion [None]

NARRATIVE: CASE EVENT DATE: 20190219
